FAERS Safety Report 5150280-2 (Version None)
Quarter: 2006Q4

REPORT INFORMATION
  Report Type: 
  Country: None (occurrence: None)
  Receive Date: 20061110
  Receipt Date: 20061110
  Transmission Date: 20070319
  Serious: No
  Sender: FDA-Public Use
  Company Number: None

PATIENT
  Age: 11 Year
  Sex: Female
  Weight: 88 kg

DRUGS (4)
  1. CABERGOLINE [Suspect]
     Indication: HYPOPITUITARISM
     Dosage: SEE IMAGE
     Route: 048
     Dates: start: 20060701
  2. CABERGOLINE [Suspect]
     Indication: PITUITARY TUMOUR BENIGN
     Dosage: SEE IMAGE
     Route: 048
     Dates: start: 20060701
  3. CABERGOLINE [Suspect]
     Indication: HYPOPITUITARISM
     Dosage: SEE IMAGE
     Route: 048
     Dates: start: 20060901
  4. CABERGOLINE [Suspect]
     Indication: PITUITARY TUMOUR BENIGN
     Dosage: SEE IMAGE
     Route: 048
     Dates: start: 20060901

REACTIONS (6)
  - FLUSHING [None]
  - HOT FLUSH [None]
  - INSOMNIA [None]
  - MOOD ALTERED [None]
  - PHARMACEUTICAL PRODUCT COMPLAINT [None]
  - STARING [None]
